FAERS Safety Report 15794891 (Version 2)
Quarter: 2019Q1

REPORT INFORMATION
  Report Type: Report from Study
  Country: US (occurrence: US)
  Receive Date: 20190107
  Receipt Date: 20190108
  Transmission Date: 20190417
  Serious: No
  Sender: FDA-Public Use
  Company Number: US-BRISTOL-MYERS SQUIBB COMPANY-BMS-2019-000590

PATIENT
  Sex: Female

DRUGS (2)
  1. NIVOLUMAB [Suspect]
     Active Substance: NIVOLUMAB
     Indication: MALIGNANT MELANOMA
     Dosage: UNK, Q4WK
     Route: 042
     Dates: start: 20180601
  2. LEVOTHYROXINE. [Concomitant]
     Active Substance: LEVOTHYROXINE
     Indication: PRODUCT USED FOR UNKNOWN INDICATION
     Dosage: 112 ?G, QD
     Route: 065

REACTIONS (7)
  - Dysphagia [Unknown]
  - Dysphonia [Unknown]
  - Muscle spasms [Unknown]
  - Myalgia [Unknown]
  - Fatigue [Unknown]
  - Dry skin [Unknown]
  - Hiccups [Unknown]
